FAERS Safety Report 19689674 (Version 1)
Quarter: 2021Q3

REPORT INFORMATION
  Report Type: Report from Study
  Country: IT (occurrence: IT)
  Receive Date: 20210812
  Receipt Date: 20210812
  Transmission Date: 20211014
  Serious: Yes (Other)
  Sender: FDA-Public Use
  Company Number: IT-SUN PHARMACEUTICAL INDUSTRIES LTD-2021R1-307480

PATIENT
  Age: 11 Year
  Sex: Male

DRUGS (1)
  1. PARACETAMOL [Suspect]
     Active Substance: ACETAMINOPHEN
     Indication: PNEUMONIA MYCOPLASMAL
     Dosage: UNK
     Route: 065

REACTIONS (6)
  - Conjunctivitis [Unknown]
  - Rash [Unknown]
  - Cheilitis [Unknown]
  - Blister [Unknown]
  - Pneumonia mycoplasmal [Unknown]
  - Mucosal inflammation [Unknown]
